FAERS Safety Report 21769568 (Version 1)
Quarter: 2022Q4

REPORT INFORMATION
  Report Type: Report from Study
  Country: US (occurrence: US)
  Receive Date: 20221223
  Receipt Date: 20221223
  Transmission Date: 20230113
  Serious: Yes (Hospitalization, Other)
  Sender: FDA-Public Use
  Company Number: US-BoehringerIngelheim-2020-BI-071527

PATIENT
  Age: 73 Year
  Sex: Female

DRUGS (1)
  1. OFEV [Suspect]
     Active Substance: NINTEDANIB
     Indication: Idiopathic pulmonary fibrosis
     Route: 048
     Dates: start: 20200508

REACTIONS (12)
  - Dyspnoea [Not Recovered/Not Resolved]
  - Chest pain [Not Recovered/Not Resolved]
  - Respiratory tract congestion [Unknown]
  - Vaginal haemorrhage [Not Recovered/Not Resolved]
  - Pulmonary oedema [Unknown]
  - Respiratory disorder [Unknown]
  - Colon cancer [Unknown]
  - Post procedural infection [Not Recovered/Not Resolved]
  - Intestinal cyst [Unknown]
  - Gastric disorder [Not Recovered/Not Resolved]
  - Cyst [Not Recovered/Not Resolved]
  - Procedural complication [Unknown]

NARRATIVE: CASE EVENT DATE: 20201217
